FAERS Safety Report 18415188 (Version 1)
Quarter: 2020Q4

REPORT INFORMATION
  Report Type: Spontaneous
  Country: US (occurrence: US)
  Receive Date: 20201022
  Receipt Date: 20201022
  Transmission Date: 20210114
  Serious: No
  Sender: FDA-Public Use
  Company Number: None

PATIENT
  Age: 18 Year
  Sex: Male
  Weight: 56.7 kg

DRUGS (1)
  1. ETOPOSIDE. [Suspect]
     Active Substance: ETOPOSIDE
     Indication: NEOPLASM MALIGNANT
     Route: 041
     Dates: start: 20201012, end: 20201016

REACTIONS (5)
  - Chest discomfort [None]
  - Flushing [None]
  - Infusion related reaction [None]
  - Lip swelling [None]
  - Malaise [None]

NARRATIVE: CASE EVENT DATE: 20201012
